FAERS Safety Report 20291925 (Version 1)
Quarter: 2022Q1

REPORT INFORMATION
  Report Type: Spontaneous
  Country: US (occurrence: None)
  Receive Date: 20220104
  Receipt Date: 20220104
  Transmission Date: 20220423
  Serious: No
  Sender: FDA-Public Use
  Company Number: None

PATIENT
  Age: 87 Year
  Sex: Female
  Weight: 51.75 kg

DRUGS (1)
  1. REGEN-COV [Suspect]
     Active Substance: CASIRIVIMAB\IMDEVIMAB
     Indication: SARS-CoV-2 antibody test positive
     Dosage: FREQUENCY : ONCE;?
     Route: 058
     Dates: start: 20211230, end: 20211230

REACTIONS (2)
  - Rash erythematous [None]
  - Skin erosion [None]

NARRATIVE: CASE EVENT DATE: 20211231
